FAERS Safety Report 17328011 (Version 1)
Quarter: 2020Q1

REPORT INFORMATION
  Report Type: Spontaneous
  Country: US (occurrence: US)
  Receive Date: 20200127
  Receipt Date: 20200127
  Transmission Date: 20200409
  Serious: No
  Sender: FDA-Public Use
  Company Number: US-PFIZER INC-2020033332

PATIENT
  Age: 77 Year

DRUGS (1)
  1. TOVIAZ [Suspect]
     Active Substance: FESOTERODINE FUMARATE
     Indication: INCONTINENCE
     Dosage: UNK

REACTIONS (4)
  - Malaise [Unknown]
  - Vision blurred [Unknown]
  - Nausea [Unknown]
  - Hypersensitivity [Unknown]
